FAERS Safety Report 20246517 (Version 1)
Quarter: 2021Q4

REPORT INFORMATION
  Report Type: Spontaneous
  Country: US (occurrence: None)
  Receive Date: 20211228
  Receipt Date: 20211228
  Transmission Date: 20220303
  Serious: Yes (Hospitalization)
  Sender: FDA-Public Use
  Company Number: None

PATIENT
  Age: 75 Year
  Sex: Male
  Weight: 50 kg

DRUGS (7)
  1. YESCARTA [Suspect]
     Active Substance: AXICABTAGENE CILOLEUCEL
     Indication: Diffuse large B-cell lymphoma
     Dosage: FREQUENCY : ONCE;?
     Route: 042
     Dates: start: 20211105, end: 20211105
  2. acyclovir (Zovirax) [Concomitant]
     Dates: start: 20211104, end: 20211228
  3. KEPPRA [Concomitant]
     Active Substance: LEVETIRACETAM
     Dates: start: 20211104, end: 20211228
  4. piperacillin-tazobactam (Zosyn) 3.375 gram/50 mL dextrose IVPB [Concomitant]
     Dates: end: 20211122
  5. anakinra (Kineret) subcutaneous injection [Concomitant]
     Dates: start: 20211101, end: 20211122
  6. DECADRON [Concomitant]
     Active Substance: DEXAMETHASONE
     Dates: end: 20211122
  7. ACTEMRA [Concomitant]
     Active Substance: TOCILIZUMAB
     Dates: end: 20211108

REACTIONS (4)
  - Neurotoxicity [None]
  - Cerebrovascular accident [None]
  - Dysarthria [None]
  - Pyrexia [None]

NARRATIVE: CASE EVENT DATE: 20211105
